FAERS Safety Report 25993517 (Version 1)
Quarter: 2025Q4

REPORT INFORMATION
  Report Type: Report from Study
  Country: IN (occurrence: IN)
  Receive Date: 20251104
  Receipt Date: 20251104
  Transmission Date: 20260117
  Serious: Yes (Death)
  Sender: ROCHE
  Company Number: IN-ROCHE-10000356595

PATIENT
  Age: 76 Year
  Sex: Male
  Weight: 61 kg

DRUGS (1)
  1. GAZYVA [Suspect]
     Active Substance: OBINUTUZUMAB
     Indication: Follicular lymphoma
     Route: 042
     Dates: start: 20250716

REACTIONS (2)
  - Pyrexia [Unknown]
  - Death [Fatal]

NARRATIVE: CASE EVENT DATE: 20250730
